FAERS Safety Report 6386545-6 (Version None)
Quarter: 2009Q4

REPORT INFORMATION
  Report Type: 
  Country: None (occurrence: None)
  Receive Date: 20091002
  Receipt Date: 20090408
  Transmission Date: 20100525
  Serious: No
  Sender: FDA-Public Use
  Company Number: US-ASTRAZENECA-2009UW08830

PATIENT
  Sex: Female
  Weight: 88.5 kg

DRUGS (5)
  1. ARIMIDEX [Suspect]
     Indication: BREAST CANCER
     Route: 048
     Dates: start: 20090201
  2. ARIMIDEX [Suspect]
     Route: 048
  3. IBUPROFEN [Concomitant]
  4. LEVOXYL [Concomitant]
  5. NUTRACEUTICAL [Concomitant]

REACTIONS (5)
  - FATIGUE [None]
  - FIBROMYALGIA [None]
  - MYALGIA [None]
  - NAUSEA [None]
  - PAIN [None]
